FAERS Safety Report 6169767-9 (Version None)
Quarter: 2009Q2

REPORT INFORMATION
  Report Type: 
  Country: None (occurrence: None)
  Receive Date: 20090428
  Receipt Date: 20090423
  Transmission Date: 20091009
  Serious: Yes (Other)
  Sender: FDA-Public Use
  Company Number: US-BAYER-200918797NA

PATIENT
  Age: 66 Year
  Sex: Male

DRUGS (3)
  1. NEXAVAR [Suspect]
     Indication: HEPATIC NEOPLASM MALIGNANT
     Dosage: TOTAL DAILY DOSE: 800 MG  UNIT DOSE: 200 MG
     Route: 048
     Dates: start: 20090417, end: 20090417
  2. NEXAVAR [Suspect]
     Dosage: DECREASED THE DOSE (NOS)
     Route: 048
     Dates: start: 20090418, end: 20090401
  3. NEXAVAR [Suspect]
     Dosage: TOTAL DAILY DOSE: 800 MG  UNIT DOSE: 200 MG
     Route: 048
     Dates: start: 20090401

REACTIONS (6)
  - DIARRHOEA [None]
  - DYSPHONIA [None]
  - EUPHORIC MOOD [None]
  - FATIGUE [None]
  - SKIN DISCOLOURATION [None]
  - SOMNOLENCE [None]
